FAERS Safety Report 14925193 (Version 2)
Quarter: 2018Q3

REPORT INFORMATION
  Report Type: Spontaneous
  Country: US (occurrence: US)
  Receive Date: 20180522
  Receipt Date: 20180705
  Transmission Date: 20181010
  Serious: Yes (Other)
  Sender: FDA-Public Use
  Company Number: US-TEVA-2018-US-896010

PATIENT
  Sex: Male

DRUGS (1)
  1. AMPHETAMINE W/DEXTROAMPHETAMINE [Suspect]
     Active Substance: AMPHETAMINE SULFATE\DEXTROAMPHETAMINE
     Indication: ATTENTION DEFICIT/HYPERACTIVITY DISORDER
     Dates: start: 2002, end: 2018

REACTIONS (10)
  - Starvation [Unknown]
  - Presyncope [Unknown]
  - Mood swings [Unknown]
  - Mental impairment [Unknown]
  - Drug ineffective [Unknown]
  - Asthenia [Unknown]
  - Weight increased [Unknown]
  - Vision blurred [Unknown]
  - Hunger [Unknown]
  - Somnolence [Unknown]

NARRATIVE: CASE EVENT DATE: 201710
